FAERS Safety Report 8120048-3 (Version None)
Quarter: 2011Q4

REPORT INFORMATION
  Report Type: 
  Country: None (occurrence: None)
  Receive Date: 20111227
  Receipt Date: 20111108
  Transmission Date: 20120403
  Serious: No
  Sender: FDA-Public Use
  Company Number: PHHY2011US44777

PATIENT
  Age: 45 Year
  Sex: Female

DRUGS (8)
  1. MUSCLE RELAXANTS [Concomitant]
  2. VITAMINS NOS (VITAMINS NOS) [Concomitant]
  3. GILENYA [Suspect]
     Indication: MULTIPLE SCLEROSIS
     Dosage: 0.5 MG, QD, ORAL
     Route: 048
     Dates: start: 20110501
  4. FISH OIL (FISH OIL) [Concomitant]
  5. VITAMIN D [Concomitant]
  6. BACLOFEN [Concomitant]
  7. YASMIN [Concomitant]
  8. BIOTIN (BIOTIN) [Concomitant]

REACTIONS (7)
  - FATIGUE [None]
  - DYSPNOEA EXERTIONAL [None]
  - GAIT DISTURBANCE [None]
  - DEPRESSION [None]
  - BALANCE DISORDER [None]
  - SENSATION OF HEAVINESS [None]
  - ASTHENIA [None]
